FAERS Safety Report 15525626 (Version 3)
Quarter: 2019Q1

REPORT INFORMATION
  Report Type: Spontaneous
  Country: GB (occurrence: GB)
  Receive Date: 20181018
  Receipt Date: 20190116
  Transmission Date: 20190417
  Serious: Yes (Congenital Anomaly)
  Sender: FDA-Public Use
  Company Number: GB-ASTRAZENECA-2018SF32876

PATIENT
  Sex: Female

DRUGS (7)
  1. METFORMIN [Concomitant]
     Active Substance: METFORMIN HYDROCHLORIDE
     Dosage: CONTINUED THROUGHOUT PREGNANCY
     Route: 064
  2. OMEPRAZOLE. [Concomitant]
     Active Substance: OMEPRAZOLE
     Dosage: CONTINUED THROUGHOUT PREGNANCY
     Route: 064
  3. NOVOMIX [Concomitant]
     Active Substance: INSULIN ASPART
     Route: 064
     Dates: end: 20180701
  4. DAPAGLIFLOZIN. [Suspect]
     Active Substance: DAPAGLIFLOZIN
     Indication: TYPE 2 DIABETES MELLITUS
     Route: 064
     Dates: end: 20180702
  5. SERTRALINE HYDROCHLORIDE. [Concomitant]
     Active Substance: SERTRALINE HYDROCHLORIDE
     Dosage: CONTINUED THROUGHOUT PREGNANCY
     Route: 064
  6. NOVORAPID [Concomitant]
     Active Substance: INSULIN ASPART
     Dates: start: 20180702
  7. LEVEMIR [Concomitant]
     Active Substance: INSULIN DETEMIR
     Dates: start: 20180702

REACTIONS (6)
  - Atrial septal defect [Unknown]
  - Dextrocardia [Unknown]
  - Foetal exposure during pregnancy [Unknown]
  - Persistent foetal circulation [Unknown]
  - Congenital diaphragmatic hernia [Not Recovered/Not Resolved]
  - Tricuspid valve incompetence [Unknown]

NARRATIVE: CASE EVENT DATE: 201807
